FAERS Safety Report 23087473 (Version 1)
Quarter: 2023Q4

REPORT INFORMATION
  Report Type: Report from Study
  Country: CA (occurrence: CA)
  Receive Date: 20231020
  Receipt Date: 20231020
  Transmission Date: 20240110
  Serious: Yes (Hospitalization, Other)
  Sender: FDA-Public Use
  Company Number: CA-SANDOZ-SDZ2023CA041721

PATIENT
  Age: 66 Year
  Sex: Female

DRUGS (1)
  1. ERELZI [Suspect]
     Active Substance: ETANERCEPT-SZZS
     Indication: Rheumatoid arthritis
     Dosage: 50 MG
     Route: 058
     Dates: start: 20221007

REACTIONS (6)
  - Bone cancer [Unknown]
  - Orbital myositis [Unknown]
  - Central nervous system lesion [Unknown]
  - Periorbital oedema [Unknown]
  - Eye movement disorder [Unknown]
  - Rash [Unknown]

NARRATIVE: CASE EVENT DATE: 20221201
